FAERS Safety Report 7744750-8 (Version None)
Quarter: 2011Q3

REPORT INFORMATION
  Report Type: 
  Country: None (occurrence: None)
  Receive Date: 20110912
  Receipt Date: 20110912
  Transmission Date: 20111222
  Serious: Yes (Hospitalization)
  Sender: FDA-Public Use
  Company Number: None

PATIENT
  Age: 48 Year
  Sex: Female
  Weight: 114 kg

DRUGS (1)
  1. DISULFIRAM [Suspect]
     Indication: ALCOHOLISM
     Dosage: 250MG
     Route: 048
     Dates: start: 20110607, end: 20110729

REACTIONS (6)
  - SOMNOLENCE [None]
  - HEPATIC FAILURE [None]
  - ROAD TRAFFIC ACCIDENT [None]
  - ASTHENIA [None]
  - CONFUSIONAL STATE [None]
  - HEPATOTOXICITY [None]
